FAERS Safety Report 6522513-9 (Version None)
Quarter: 2009Q4

REPORT INFORMATION
  Report Type: 
  Country: None (occurrence: None)
  Receive Date: 20091230
  Receipt Date: 20091218
  Transmission Date: 20100525
  Serious: Yes (Other)
  Sender: FDA-Public Use
  Company Number: CA-AMGEN-QUU381354

PATIENT
  Age: 42 Year
  Sex: Female
  Weight: 63.6 kg

DRUGS (7)
  1. NEUPOGEN [Suspect]
     Indication: DRUG USE FOR UNKNOWN INDICATION
     Route: 058
  2. ATIVAN [Concomitant]
     Route: 048
  3. CYCLOPHOSPHAMIDE [Concomitant]
  4. DECADRON [Concomitant]
     Route: 042
  5. DOXORUBICIN HCL [Concomitant]
  6. STEMETIL [Concomitant]
  7. ZOFRAN [Concomitant]
     Route: 060

REACTIONS (5)
  - DYSPNOEA [None]
  - HYPOAESTHESIA ORAL [None]
  - PRURITUS [None]
  - THROAT IRRITATION [None]
  - TONGUE OEDEMA [None]
